FAERS Safety Report 4874559-4 (Version None)
Quarter: 2006Q1

REPORT INFORMATION
  Report Type: 
  Country: None (occurrence: None)
  Receive Date: 20060106
  Receipt Date: 20050927
  Transmission Date: 20060701
  Serious: Yes (Death)
  Sender: FDA-Public Use
  Company Number: FR-AMGEN-UK152373

PATIENT
  Age: 75 Year
  Sex: Female
  Weight: 60 kg

DRUGS (3)
  1. ARANESP [Suspect]
     Indication: ANAEMIA OF MALIGNANT DISEASE
     Route: 058
     Dates: start: 20050711, end: 20050911
  2. DEROXAT [Concomitant]
     Route: 065
  3. TOPALGIC [Concomitant]
     Route: 065

REACTIONS (4)
  - DISEASE PROGRESSION [None]
  - LEUKOCYTOSIS [None]
  - LYMPHOMA [None]
  - MYELOPROLIFERATIVE DISORDER [None]
